FAERS Safety Report 5839369-X (Version None)
Quarter: 2008Q3

REPORT INFORMATION
  Report Type: 
  Country: None (occurrence: None)
  Receive Date: 20080806
  Receipt Date: 20080801
  Transmission Date: 20090109
  Serious: No
  Sender: FDA-Public Use
  Company Number: 20085165

PATIENT
  Age: 41 Year
  Sex: Male

DRUGS (3)
  1. LIORESAL [Suspect]
     Indication: MUSCLE SPASTICITY
     Dosage: 50-75 MCG, DAILY, INTRATHECAL
     Route: 037
     Dates: start: 20061120
  2. RIVOTRIL [Concomitant]
  3. SOLDEM 3-A [Concomitant]

REACTIONS (5)
  - DECUBITUS ULCER [None]
  - IMPAIRED HEALING [None]
  - INCISION SITE COMPLICATION [None]
  - INTESTINAL OBSTRUCTION [None]
  - TORTICOLLIS [None]
